FAERS Safety Report 5148017-6 (Version None)
Quarter: 2006Q4

REPORT INFORMATION
  Report Type: 
  Country: None (occurrence: None)
  Receive Date: 20061110
  Receipt Date: 20061109
  Transmission Date: 20070319
  Serious: Yes (Other)
  Sender: FDA-Public Use
  Company Number: US-GLAXOSMITHKLINE-A0626897A

PATIENT
  Age: 65 Year
  Sex: Female

DRUGS (9)
  1. LAMICTAL [Suspect]
     Indication: DRUG USE FOR UNKNOWN INDICATION
     Dosage: 25MG TWICE PER DAY
     Route: 048
     Dates: start: 20060801
  2. WELLBUTRIN [Suspect]
     Indication: DEPRESSION
     Route: 048
     Dates: end: 20050101
  3. PLAVIX [Concomitant]
  4. AVAPRO [Concomitant]
  5. PREMARIN [Concomitant]
  6. BURINEX [Concomitant]
  7. QUININE SULFATE [Concomitant]
  8. TOPROL-XL [Concomitant]
  9. LUNESTA [Concomitant]

REACTIONS (4)
  - CONVULSION [None]
  - FEELING DRUNK [None]
  - PRURITUS [None]
  - RASH [None]
